FAERS Safety Report 20975565 (Version 2)
Quarter: 2022Q3

REPORT INFORMATION
  Report Type: Report from Study
  Country: EG (occurrence: EG)
  Receive Date: 20220617
  Receipt Date: 20220630
  Transmission Date: 20221027
  Serious: Yes (Other)
  Sender: FDA-Public Use
  Company Number: EG-NOVARTISPH-NVSC2022EG137423

PATIENT
  Sex: Female

DRUGS (2)
  1. TASIGNA [Suspect]
     Active Substance: NILOTINIB
     Indication: Chronic myeloid leukaemia
     Dosage: 800 MG, QD (800 MG/DAY, 4 CAPS) (START DATE 13 YEARS AGO, STOP DATE 6 MONTH AGO)
     Route: 065
  2. SPRYCEL [Suspect]
     Active Substance: DASATINIB
     Indication: Product used for unknown indication
     Dosage: 100 MG, QD (100 MG/DAY, 2 TABLETS)
     Route: 065

REACTIONS (12)
  - Cytogenetic analysis abnormal [Not Recovered/Not Resolved]
  - Cerebral disorder [Not Recovered/Not Resolved]
  - Headache [Not Recovered/Not Resolved]
  - Syncope [Not Recovered/Not Resolved]
  - White blood cell count increased [Not Recovered/Not Resolved]
  - Skin discolouration [Recovered/Resolved]
  - Splenomegaly [Recovered/Resolved]
  - Anaemia [Not Recovered/Not Resolved]
  - Drug ineffective [Not Recovered/Not Resolved]
  - Pyrexia [Not Recovered/Not Resolved]
  - Food allergy [Not Recovered/Not Resolved]
  - Nasopharyngitis [Not Recovered/Not Resolved]

NARRATIVE: CASE EVENT DATE: 20210101
